FAERS Safety Report 8459535-7 (Version None)
Quarter: 2012Q2

REPORT INFORMATION
  Report Type: 
  Country: None (occurrence: None)
  Receive Date: 20120622
  Receipt Date: 20120619
  Transmission Date: 20120825
  Serious: Yes (Hospitalization)
  Sender: FDA-Public Use
  Company Number: DE-PFIZER INC-2012147960

PATIENT
  Sex: Female

DRUGS (1)
  1. MINOXIDIL [Suspect]
     Indication: HYPERTENSION
     Dosage: 1.5-1-1, PER DAY
     Dates: start: 20120101

REACTIONS (2)
  - DYSPNOEA [None]
  - OEDEMA PERIPHERAL [None]
